FAERS Safety Report 4544550-6 (Version None)
Quarter: 2004Q4

REPORT INFORMATION
  Report Type: 
  Country: None (occurrence: None)
  Receive Date: 20041230
  Receipt Date: 20041217
  Transmission Date: 20050328
  Serious: Yes (Other)
  Sender: FDA-Public Use
  Company Number: 2004117636

PATIENT
  Age: 43 Year
  Sex: Male
  Weight: 81.6475 kg

DRUGS (2)
  1. CELEBREX [Suspect]
     Indication: BACK DISORDER
     Dates: start: 20020101, end: 20020101
  2. ACETYLSALICYLIC ACID SRT [Concomitant]

REACTIONS (14)
  - EATING DISORDER [None]
  - GASTRIC HAEMORRHAGE [None]
  - HYPERTENSION [None]
  - IMPAIRED DRIVING ABILITY [None]
  - INFLUENZA [None]
  - INSOMNIA [None]
  - LIVER DISORDER [None]
  - NAUSEA [None]
  - PARAESTHESIA [None]
  - RENAL DISORDER [None]
  - SWELLING [None]
  - TEMPERATURE INTOLERANCE [None]
  - TINNITUS [None]
  - VISION BLURRED [None]
